FAERS Safety Report 5570883-0 (Version None)
Quarter: 2007Q4

REPORT INFORMATION
  Report Type: 
  Country: None (occurrence: None)
  Receive Date: 20071221
  Receipt Date: 20071213
  Transmission Date: 20080405
  Serious: Yes (Hospitalization, Other)
  Sender: FDA-Public Use
  Company Number: FR-ASTRAZENECA-2007CG01786

PATIENT
  Age: 710 Month
  Sex: Female

DRUGS (6)
  1. ARIMIDEX [Suspect]
     Indication: BREAST CANCER FEMALE
     Route: 048
     Dates: start: 20050901
  2. ATACAND [Concomitant]
     Indication: HYPERTENSION
     Route: 048
  3. AMLOR [Concomitant]
     Indication: HYPERTENSION
     Route: 048
  4. LEVOTHYROX [Concomitant]
     Indication: HYPOTHYROIDISM
     Route: 048
  5. SOTALOL HCL [Concomitant]
     Indication: CARDIAC DISORDER
  6. DIOSMIN [Concomitant]

REACTIONS (2)
  - KERATOCONJUNCTIVITIS SICCA [None]
  - ULCERATIVE KERATITIS [None]
